FAERS Safety Report 15541897 (Version 1)
Quarter: 2018Q4

REPORT INFORMATION
  Report Type: Spontaneous
  Country: US (occurrence: US)
  Receive Date: 20181023
  Receipt Date: 20181023
  Transmission Date: 20190205
  Serious: No
  Sender: FDA-Public Use
  Company Number: US-PFIZER INC-2018423825

PATIENT
  Age: 8 Year
  Sex: Female
  Weight: 25.85 kg

DRUGS (3)
  1. GENOTROPIN MQ [Suspect]
     Active Substance: SOMATROPIN
     Indication: HYPOPITUITARISM
     Dosage: 1 MG, 1X/DAY (DAILY AT BEDTIME)
     Route: 058
     Dates: start: 201806
  2. QVAR [Concomitant]
     Active Substance: BECLOMETHASONE DIPROPIONATE
     Dosage: UNK
  3. EPINEPHRINE. [Concomitant]
     Active Substance: EPINEPHRINE
     Dosage: UNK UNK, AS NEEDED

REACTIONS (2)
  - Injection site pain [Recovered/Resolved]
  - Skin odour abnormal [Unknown]

NARRATIVE: CASE EVENT DATE: 2018
